FAERS Safety Report 7577117-6 (Version None)
Quarter: 2011Q2

REPORT INFORMATION
  Report Type: 
  Country: None (occurrence: None)
  Receive Date: 20110628
  Receipt Date: 20110616
  Transmission Date: 20111010
  Serious: Yes (Other)
  Sender: FDA-Public Use
  Company Number: US-BAYER-2011-053065

PATIENT
  Age: 67 Year
  Sex: Female
  Weight: 73 kg

DRUGS (1)
  1. NAPROXEN (ALEVE) [Suspect]
     Indication: ARTHRALGIA
     Dosage: BOTTLE COUNT 80S
     Route: 048
     Dates: start: 20110606

REACTIONS (1)
  - URINARY RETENTION [None]
